FAERS Safety Report 19496388 (Version 1)
Quarter: 2021Q3

REPORT INFORMATION
  Report Type: Report from Study
  Country: US (occurrence: US)
  Receive Date: 20210706
  Receipt Date: 20210706
  Transmission Date: 20211014
  Serious: Yes (Hospitalization, Other)
  Sender: FDA-Public Use
  Company Number: US-SA-2020SA265326

PATIENT
  Age: 47 Year
  Sex: Female

DRUGS (2)
  1. ZITHROMAX [Concomitant]
     Active Substance: AZITHROMYCIN DIHYDRATE
     Dosage: UNK
  2. TERIFLUNOMIDE. [Suspect]
     Active Substance: TERIFLUNOMIDE
     Indication: MULTIPLE SCLEROSIS
     Dosage: 14 MG, QD
     Route: 048
     Dates: start: 20200902

REACTIONS (7)
  - Hypertension [Not Recovered/Not Resolved]
  - Ear infection [Not Recovered/Not Resolved]
  - Pain in extremity [Not Recovered/Not Resolved]
  - Large intestine perforation [Recovered/Resolved]
  - Cough [Not Recovered/Not Resolved]
  - Renal failure [Recovered/Resolved]
  - Genital contusion [Recovering/Resolving]

NARRATIVE: CASE EVENT DATE: 2020
